FAERS Safety Report 20187308 (Version 1)
Quarter: 2021Q4

REPORT INFORMATION
  Report Type: Spontaneous
  Country: US (occurrence: US)
  Receive Date: 20211215
  Receipt Date: 20211215
  Transmission Date: 20220303
  Serious: Yes (Hospitalization)
  Sender: FDA-Public Use
  Company Number: US-MYLANLABS-2021M1092691

PATIENT
  Age: 48 Year
  Sex: Female

DRUGS (4)
  1. FENTANYL [Suspect]
     Active Substance: FENTANYL
     Indication: Pain
     Dosage: UNK UNK, Q3D,125 MICROG/H
     Route: 062
  2. FENTANYL [Suspect]
     Active Substance: FENTANYL
     Dosage: UNK, DOSE REDUCED
     Route: 062
  3. OXYCODONE [Suspect]
     Active Substance: OXYCODONE
     Indication: Pain
     Dosage: 10MG TO 20MG EVERY 4 HOURS AS NEEDED
     Route: 065
  4. HYDROMORPHONE [Suspect]
     Active Substance: HYDROMORPHONE
     Indication: Pain
     Dosage: PAIN REGIMEN CONSISTED OF HYDROMORPHONE PATIENT CONTROLLED ANALGESIA (PCA) PUMP WITH THE FOLLOWING S
     Route: 065

REACTIONS (2)
  - Hyperaesthesia [Recovering/Resolving]
  - Drug ineffective [Recovering/Resolving]
